FAERS Safety Report 4757346-7 (Version None)
Quarter: 2005Q3

REPORT INFORMATION
  Report Type: 
  Country: None (occurrence: None)
  Receive Date: 20050829
  Receipt Date: 20050816
  Transmission Date: 20060218
  Serious: Yes (Hospitalization, Other)
  Sender: FDA-Public Use
  Company Number: 2005116861

PATIENT
  Age: 52 Year
  Sex: Female
  Weight: 68.9467 kg

DRUGS (6)
  1. DETROL LA [Suspect]
     Indication: MICTURITION URGENCY
     Dosage: 4 MG (4 MG, 1 IN 1 D), ORAL
     Route: 048
     Dates: start: 20040801
  2. DETROL LA [Suspect]
     Indication: POLLAKIURIA
     Dosage: 4 MG (4 MG, 1 IN 1 D), ORAL
     Route: 048
     Dates: start: 20040801
  3. SOMA [Suspect]
     Indication: ILL-DEFINED DISORDER
  4. CELEBREX [Concomitant]
  5. PLAQUENIL [Concomitant]
  6. NEURONTIN [Concomitant]

REACTIONS (7)
  - ARTHROPOD BITE [None]
  - DRUG EFFECT DECREASED [None]
  - FOOT FRACTURE [None]
  - HIP ARTHROPLASTY [None]
  - HYPERHIDROSIS [None]
  - INSOMNIA [None]
  - MIGRAINE [None]
